FAERS Safety Report 6701248-3 (Version None)
Quarter: 2010Q2

REPORT INFORMATION
  Report Type: 
  Country: None (occurrence: None)
  Receive Date: 20100427
  Receipt Date: 20100413
  Transmission Date: 20101027
  Serious: Yes (Other)
  Sender: FDA-Public Use
  Company Number: 009529

PATIENT
  Age: 41 Year
  Sex: Female

DRUGS (2)
  1. BUSULFEX [Suspect]
     Indication: TRANSPLANT
  2. CYCLOPHOSPHAMIDE [Concomitant]

REACTIONS (6)
  - ACUTE GRAFT VERSUS HOST DISEASE IN INTESTINE [None]
  - ACUTE GRAFT VERSUS HOST DISEASE IN SKIN [None]
  - CHRONIC GRAFT VERSUS HOST DISEASE [None]
  - PANCREATIC ATROPHY [None]
  - SICCA SYNDROME [None]
  - STEATORRHOEA [None]
